FAERS Safety Report 17729452 (Version 7)
Quarter: 2021Q1

REPORT INFORMATION
  Report Type: Report from Study
  Country: CA (occurrence: CA)
  Receive Date: 20200430
  Receipt Date: 20210325
  Transmission Date: 20210419
  Serious: Yes (Other)
  Sender: FDA-Public Use
  Company Number: NVSC2019CA033872

PATIENT
  Age: 10 Year
  Sex: Female

DRUGS (14)
  1. ILARIS [Suspect]
     Active Substance: CANAKINUMAB
     Indication: STILL^S DISEASE
     Dosage: 150 MG, Q4W
     Route: 058
     Dates: start: 20191009
  2. ILARIS [Suspect]
     Active Substance: CANAKINUMAB
     Dosage: 255 OT, Q3W
     Route: 058
     Dates: start: 20191009
  3. ILARIS [Suspect]
     Active Substance: CANAKINUMAB
     Dosage: 220 MG, Q4W
     Route: 058
     Dates: start: 20191213
  4. ILARIS [Suspect]
     Active Substance: CANAKINUMAB
     Dosage: 220 OT, Q4W
     Route: 058
     Dates: start: 20200225
  5. ILARIS [Suspect]
     Active Substance: CANAKINUMAB
     Dosage: 220 OT, Q3W
     Route: 058
     Dates: start: 20200630
  6. ILARIS [Suspect]
     Active Substance: CANAKINUMAB
     Dosage: 200 MG, Q3W
     Route: 058
     Dates: start: 20191009
  7. ILARIS [Suspect]
     Active Substance: CANAKINUMAB
     Dosage: 200 MG, Q4W
     Route: 058
     Dates: start: 20191129
  8. ILARIS [Suspect]
     Active Substance: CANAKINUMAB
     Dosage: UNK
     Route: 065
     Dates: start: 20200519, end: 20200609
  9. ILARIS [Suspect]
     Active Substance: CANAKINUMAB
     Dosage: 220 OT, Q3W
     Route: 058
     Dates: start: 20200721
  10. ILARIS [Suspect]
     Active Substance: CANAKINUMAB
     Dosage: 220 OT, Q3W
     Route: 058
     Dates: start: 20200921
  11. ILARIS [Suspect]
     Active Substance: CANAKINUMAB
     Dosage: 150 MG, Q4W
     Route: 058
     Dates: start: 20191106
  12. ILARIS [Suspect]
     Active Substance: CANAKINUMAB
     Dosage: 220 OT, Q4W
     Route: 065
     Dates: start: 20200108
  13. ILARIS [Suspect]
     Active Substance: CANAKINUMAB
     Dosage: 220 MG, Q3W
     Route: 058
     Dates: start: 20200428
  14. ILARIS [Suspect]
     Active Substance: CANAKINUMAB
     Dosage: UNK
     Route: 065
     Dates: start: 20210303

REACTIONS (19)
  - Fatigue [Unknown]
  - Pallor [Recovered/Resolved]
  - Cough [Unknown]
  - Abdominal discomfort [Unknown]
  - Asthenia [Recovered/Resolved]
  - Oropharyngeal pain [Unknown]
  - Lethargy [Recovered/Resolved]
  - Musculoskeletal discomfort [Unknown]
  - Dyspnoea [Unknown]
  - Abdominal pain upper [Unknown]
  - Inappropriate schedule of product administration [Unknown]
  - Product prescribing error [Unknown]
  - Injection site pain [Unknown]
  - Malaise [Unknown]
  - Rash [Unknown]
  - Condition aggravated [Unknown]
  - Chills [Unknown]
  - Still^s disease [Unknown]
  - Infection [Unknown]

NARRATIVE: CASE EVENT DATE: 201911
